FAERS Safety Report 18183025 (Version 1)
Quarter: 2020Q3

REPORT INFORMATION
  Report Type: Spontaneous
  Country: FR (occurrence: FR)
  Receive Date: 20200821
  Receipt Date: 20200821
  Transmission Date: 20201103
  Serious: Yes (Hospitalization)
  Sender: FDA-Public Use
  Company Number: FR-BAUSCH-BL-2020-023498

PATIENT
  Sex: Female

DRUGS (2)
  1. DEXAMETHASONE SODIUM PHOSPHATE. [Suspect]
     Active Substance: DEXAMETHASONE SODIUM PHOSPHATE
     Indication: CHEMOTHERAPY SIDE EFFECT PROPHYLAXIS
     Dosage: 8 MILLIGRAM/CYCLE
     Route: 042
     Dates: start: 20200422, end: 20200603
  2. PM01183 [Suspect]
     Active Substance: LURBINECTEDIN
     Indication: BRONCHIAL CARCINOMA
     Dosage: 4 MILLIGRAM/CYCLE
     Route: 041
     Dates: start: 20200422, end: 20200624

REACTIONS (3)
  - Persecutory delusion [Recovering/Resolving]
  - Confusional state [Recovering/Resolving]
  - Disorientation [Recovering/Resolving]

NARRATIVE: CASE EVENT DATE: 20200425
